FAERS Safety Report 7718883-6 (Version None)
Quarter: 2011Q3

REPORT INFORMATION
  Report Type: 
  Country: None (occurrence: None)
  Receive Date: 20110830
  Receipt Date: 20110825
  Transmission Date: 20111222
  Serious: Yes (Hospitalization, Other)
  Sender: FDA-Public Use
  Company Number: US-PFIZER INC-2011140954

PATIENT
  Sex: Male

DRUGS (9)
  1. MIRTAZAPINE [Concomitant]
     Indication: DEPRESSION
     Dosage: UNK
     Dates: start: 20010101
  2. TRAMADOL [Concomitant]
     Indication: PAIN
     Dosage: UNK
     Dates: start: 20010101
  3. NAPROXEN [Concomitant]
     Indication: PAIN
     Dosage: UNK
     Dates: start: 20010101
  4. KLONOPIN [Concomitant]
     Indication: ANXIETY
     Dosage: UNK
     Dates: start: 20010101
  5. GABAPENTIN [Concomitant]
     Indication: PAIN
     Dosage: UNK
     Dates: start: 20040101
  6. TOPROL-XL [Concomitant]
     Indication: BLOOD PRESSURE
     Dosage: UNK
     Dates: start: 20020101, end: 20110101
  7. CHANTIX [Suspect]
     Indication: SMOKING CESSATION THERAPY
     Dosage: 0.5MG/1MG
     Dates: start: 20070701, end: 20070801
  8. LISINOPRIL [Concomitant]
     Indication: BLOOD PRESSURE
     Dosage: UNK
     Dates: start: 20020101, end: 20110101
  9. TEMAZEPAM [Concomitant]
     Indication: SLEEP DISORDER THERAPY
     Dosage: UNK
     Dates: start: 20040101

REACTIONS (10)
  - MANIA [None]
  - DEPRESSION [None]
  - SUICIDE ATTEMPT [None]
  - AGGRESSION [None]
  - MEMORY IMPAIRMENT [None]
  - ANGER [None]
  - INTENTIONAL OVERDOSE [None]
  - ANXIETY [None]
  - ABNORMAL BEHAVIOUR [None]
  - POST-TRAUMATIC STRESS DISORDER [None]
